FAERS Safety Report 7412035-5 (Version None)
Quarter: 2011Q2

REPORT INFORMATION
  Report Type: 
  Country: None (occurrence: None)
  Receive Date: 20110413
  Receipt Date: 20110406
  Transmission Date: 20111010
  Serious: Yes (Hospitalization)
  Sender: FDA-Public Use
  Company Number: FR-BRISTOL-MYERS SQUIBB COMPANY-15661812

PATIENT
  Age: 82 Year
  Sex: Female

DRUGS (1)
  1. HYDREA [Suspect]
     Indication: THROMBOCYTOSIS
     Dosage: FROM 17JAN11 1 DOSE EVERY OTHER DAY,INTERRUPTED ON 29DEC10,RESTARTED ON 17JAN11

REACTIONS (7)
  - LYMPHOPENIA [None]
  - ATRIAL FIBRILLATION [None]
  - ESCHERICHIA INFECTION [None]
  - PULMONARY EMBOLISM [None]
  - ANAEMIA [None]
  - CEREBROVASCULAR ACCIDENT [None]
  - DIARRHOEA [None]
